FAERS Safety Report 14682608 (Version 1)
Quarter: 2018Q1

REPORT INFORMATION
  Report Type: Spontaneous
  Country: BR (occurrence: BR)
  Receive Date: 20180327
  Receipt Date: 20180327
  Transmission Date: 20180509
  Serious: Yes (Hospitalization, Other)
  Sender: FDA-Public Use
  Company Number: BR-ROCHE-2089955

PATIENT
  Age: 62 Year
  Sex: Male

DRUGS (3)
  1. OMEPRAZOLE. [Suspect]
     Active Substance: OMEPRAZOLE
     Indication: CHRONIC GASTRITIS
     Route: 065
  2. ESBRIET [Suspect]
     Active Substance: PIRFENIDONE
     Indication: IDIOPATHIC PULMONARY FIBROSIS
     Dosage: BIWEEKLY ESCALATION UNTIL TOTAL DOSE OF 9 TABLETS DAILY
     Route: 048
  3. ESBRIET [Suspect]
     Active Substance: PIRFENIDONE
     Indication: IDIOPATHIC PULMONARY FIBROSIS
     Dosage: 3 CAPSULES 3 TIMES DAILY (2403MG DAILY)
     Route: 048
     Dates: start: 20170528

REACTIONS (8)
  - Lymphadenopathy [Unknown]
  - Dyspnoea [Unknown]
  - Gastrointestinal tract adenoma [Unknown]
  - Fall [Unknown]
  - Rash [Recovered/Resolved]
  - Hypoxia [Unknown]
  - Pruritus [Recovered/Resolved]
  - Condition aggravated [Unknown]

NARRATIVE: CASE EVENT DATE: 201711
